FAERS Safety Report 6405040-9 (Version None)
Quarter: 2009Q4

REPORT INFORMATION
  Report Type: 
  Country: None (occurrence: None)
  Receive Date: 20091019
  Receipt Date: 20091007
  Transmission Date: 20100525
  Serious: Yes (Hospitalization)
  Sender: FDA-Public Use
  Company Number: FR-PFIZER INC-2009279330

PATIENT
  Age: 43 Year

DRUGS (3)
  1. NEURONTIN [Suspect]
     Dosage: 800 MG, 3X/DAY
     Route: 048
     Dates: start: 20050101
  2. MS CONTIN [Suspect]
     Dosage: 30 MG, 2X/DAY
     Route: 048
     Dates: start: 20050101, end: 20090705
  3. SEVREDOL [Suspect]
     Dosage: 10 MG, 2X/DAY
     Route: 048
     Dates: start: 20050101, end: 20090705

REACTIONS (1)
  - INTENTIONAL DRUG MISUSE [None]
